FAERS Safety Report 7125054-3 (Version None)
Quarter: 2010Q4

REPORT INFORMATION
  Report Type: 
  Country: None (occurrence: None)
  Receive Date: 20101129
  Receipt Date: 20101115
  Transmission Date: 20110411
  Serious: No
  Sender: FDA-Public Use
  Company Number: US-JNJFOC-20101105965

PATIENT
  Sex: Female
  Weight: 77.11 kg

DRUGS (6)
  1. FENTANYL-100 [Suspect]
     Indication: ARTHRITIS
     Route: 062
  2. FENTANYL-100 [Suspect]
     Indication: ARTHRITIS
     Dosage: NDC #0781-7242-55
     Route: 062
  3. PULMICORT [Concomitant]
     Indication: ASTHMA
     Route: 055
  4. ALBUTEROL [Concomitant]
     Indication: ASTHMA
     Route: 055
  5. VITAMIN D [Concomitant]
     Indication: VITAMIN SUPPLEMENTATION
     Route: 048
  6. SALMETEROL [Concomitant]
     Indication: ASTHMA
     Route: 055

REACTIONS (3)
  - APPLICATION SITE PRURITUS [None]
  - DERMATITIS CONTACT [None]
  - WRONG TECHNIQUE IN DRUG USAGE PROCESS [None]
